FAERS Safety Report 21275310 (Version 1)
Quarter: 2022Q3

REPORT INFORMATION
  Report Type: Spontaneous
  Country: GB (occurrence: GB)
  Receive Date: 20220831
  Receipt Date: 20220831
  Transmission Date: 20221027
  Serious: Yes (Disabling)
  Sender: FDA-Public Use
  Company Number: None

PATIENT
  Age: 79 Year
  Sex: Male
  Weight: 79 kg

DRUGS (10)
  1. INDAPAMIDE [Suspect]
     Active Substance: INDAPAMIDE
     Indication: Product used for unknown indication
     Dosage: 2.5 MILLIGRAM, QD (EACH MORNING AS ADVISED BY SPECIALIST)
     Route: 065
     Dates: start: 20220721
  2. AMLODIPINE [Concomitant]
     Active Substance: AMLODIPINE BESYLATE
     Dosage: 1 DOSAGE FORM, QD (NIGHT)
     Route: 065
     Dates: start: 20220302
  3. BISOPROLOL [Concomitant]
     Active Substance: BISOPROLOL
     Dosage: 1 DOSAGE FORM, QD (EACH NIGHT)
     Route: 065
     Dates: start: 20220302
  4. CANDESARTAN [Concomitant]
     Active Substance: CANDESARTAN
     Dosage: 1 DOSAGE FORM, QD
     Route: 065
     Dates: start: 20220302
  5. CLOPIDOGREL [Concomitant]
     Active Substance: CLOPIDOGREL BISULFATE
     Indication: Prophylaxis
     Dosage: 1 DOSAGE FORM, QD
     Route: 065
     Dates: start: 20220302
  6. FINASTERIDE [Concomitant]
     Active Substance: FINASTERIDE
     Dosage: 1 DOSAGE FORM, QD
     Route: 065
     Dates: start: 20220302
  7. NITROGLYCERIN [Concomitant]
     Active Substance: NITROGLYCERIN
     Dosage: UNK UNK, PRN SPRAY ONE TO TWO DOSES UNDER THE TONGUE
     Route: 065
     Dates: start: 20220302
  8. ISOSORBIDE MONONITRATE [Concomitant]
     Active Substance: ISOSORBIDE MONONITRATE
     Dosage: 2 DOSAGE FORM, QD (EACH MORNING)
     Route: 065
     Dates: start: 20220302
  9. NICORANDIL [Concomitant]
     Active Substance: NICORANDIL
     Dosage: 1 DOSAGE FORM, BID (TO HELP PREVENT ANG...)
     Route: 065
     Dates: start: 20220302
  10. ACETAMINOPHEN [Concomitant]
     Active Substance: ACETAMINOPHEN
     Indication: Ill-defined disorder
     Dosage: UNK (TAKE TWO UP TO FOUR TIMES A DAY)
     Route: 065
     Dates: start: 20220302

REACTIONS (1)
  - Sudden visual loss [Not Recovered/Not Resolved]

NARRATIVE: CASE EVENT DATE: 20220722
